FAERS Safety Report 10870793 (Version 2)
Quarter: 2015Q1

REPORT INFORMATION
  Report Type: Spontaneous
  Country: US (occurrence: None)
  Receive Date: 20150223
  Receipt Date: 20150227
  Transmission Date: 20150721
  Serious: Yes (Death, Other)
  Sender: FDA-Public Use
  Company Number: ADR-2015-00357

PATIENT
  Age: 70 Year
  Sex: Male

DRUGS (16)
  1. CALCIUM ACETATE. [Suspect]
     Active Substance: CALCIUM ACETATE
  2. COREG [Suspect]
     Active Substance: CARVEDILOL
  3. FINASTERIDE. [Suspect]
     Active Substance: FINASTERIDE
  4. CYCLOBENZAPRINE [Suspect]
     Active Substance: CYCLOBENZAPRINE
  5. NITROFURANTOIN, MACRO CRYSTALS [Suspect]
     Active Substance: NITROFURANTOIN
  6. AMLODIPINE [Suspect]
     Active Substance: AMLODIPINE BESYLATE
  7. LANTUS [Suspect]
     Active Substance: INSULIN GLARGINE
  8. BACLOFEN INTRATHECAL [Suspect]
     Active Substance: BACLOFEN
     Indication: MUSCLE SPASTICITY
  9. FLEXOR [Suspect]
     Active Substance: UNSPECIFIED INGREDIENT
  10. TAMSULOSIN [Suspect]
     Active Substance: TAMSULOSIN
  11. VITAMIN B12 [Suspect]
     Active Substance: CYANOCOBALAMIN
  12. OMEPRAZOLE. [Suspect]
     Active Substance: OMEPRAZOLE
  13. PROAIR HFA [Suspect]
     Active Substance: ALBUTEROL SULFATE
  14. NOVOLOG [Suspect]
     Active Substance: INSULIN ASPART
  15. PROCRIT [Suspect]
     Active Substance: ERYTHROPOIETIN
  16. ASPIRIN. [Suspect]
     Active Substance: ASPIRIN

REACTIONS (4)
  - Death [None]
  - Muscle spasticity [None]
  - Disease progression [None]
  - General physical health deterioration [None]

NARRATIVE: CASE EVENT DATE: 20150210
